FAERS Safety Report 12846321 (Version 2)
Quarter: 2016Q4

REPORT INFORMATION
  Report Type: Spontaneous
  Country: US (occurrence: US)
  Receive Date: 20161014
  Receipt Date: 20161027
  Transmission Date: 20170207
  Serious: Yes (Life-Threatening, Hospitalization, Other)
  Sender: FDA-Public Use
  Company Number: US-009507513-1610USA004266

PATIENT
  Age: 73 Year
  Sex: Male

DRUGS (1)
  1. JANUMET XR [Suspect]
     Active Substance: METFORMIN HYDROCHLORIDE\SITAGLIPTIN PHOSPHATE
     Indication: DIABETES MELLITUS
     Dosage: DOSE UNKNOWN, 2 TIMES DAILY
     Route: 048
     Dates: start: 20160818, end: 20160926

REACTIONS (4)
  - Bile duct obstruction [Recovered/Resolved]
  - Abdominal hernia [Recovered/Resolved]
  - Inappropriate schedule of drug administration [Unknown]
  - Pancreatitis [Recovered/Resolved]

NARRATIVE: CASE EVENT DATE: 2016
